FAERS Safety Report 17583760 (Version 1)
Quarter: 2020Q1

REPORT INFORMATION
  Report Type: Spontaneous
  Country: ES (occurrence: ES)
  Receive Date: 20200326
  Receipt Date: 20200326
  Transmission Date: 20200409
  Serious: Yes (Life-Threatening, Other)
  Sender: FDA-Public Use
  Company Number: ES-TEVA-2020-ES-1209107

PATIENT
  Age: 82 Year
  Sex: Female
  Weight: 65 kg

DRUGS (1)
  1. LINEZOLID 600 MG INYECTABLE PERFUSION 300 ML [Suspect]
     Active Substance: LINEZOLID
     Indication: SEPTIC SHOCK
     Dosage: 600MG
     Route: 042
     Dates: start: 20200229, end: 20200303

REACTIONS (1)
  - Pancytopenia [Recovered/Resolved]

NARRATIVE: CASE EVENT DATE: 20200302
